FAERS Safety Report 13958014 (Version 1)
Quarter: 2017Q3

REPORT INFORMATION
  Report Type: Spontaneous
  Country: US (occurrence: US)
  Receive Date: 20170911
  Receipt Date: 20170911
  Transmission Date: 20171128
  Serious: No
  Sender: FDA-Public Use
  Company Number: US-ROCHE-1046873

PATIENT
  Sex: Female

DRUGS (1)
  1. RITUXAN [Suspect]
     Active Substance: RITUXIMAB
     Indication: PRODUCT USED FOR UNKNOWN INDICATION
     Route: 065
     Dates: start: 20120229

REACTIONS (6)
  - Peripheral swelling [Unknown]
  - Pyrexia [Unknown]
  - Chills [Unknown]
  - Lip exfoliation [Unknown]
  - Pain in extremity [Unknown]
  - Malaise [Unknown]
